FAERS Safety Report 6152042-6 (Version None)
Quarter: 2009Q2

REPORT INFORMATION
  Report Type: 
  Country: None (occurrence: None)
  Receive Date: 20090409
  Receipt Date: 20090409
  Transmission Date: 20091009
  Serious: Yes (Hospitalization)
  Sender: FDA-Public Use
  Company Number: None

PATIENT
  Sex: Male
  Weight: 119.296 kg

DRUGS (1)
  1. REBIF [Suspect]
     Indication: MULTIPLE SCLEROSIS
     Dosage: 44 MCG 3X/WEEK SQ
     Route: 058
     Dates: start: 20050401, end: 20090401

REACTIONS (2)
  - DYSSTASIA [None]
  - TRANSIENT ISCHAEMIC ATTACK [None]
